FAERS Safety Report 4300199-1 (Version None)
Quarter: 2004Q1

REPORT INFORMATION
  Report Type: 
  Country: None (occurrence: None)
  Receive Date: 20040218
  Receipt Date: 20040218
  Transmission Date: 20041129
  Serious: Yes (Other)
  Sender: FDA-Public Use
  Company Number: None

PATIENT
  Age: 67 Year
  Sex: Male
  Weight: 83.0083 kg

DRUGS (5)
  1. ZOCOR [Suspect]
     Indication: HYPERLIPIDAEMIA
  2. .. [Concomitant]
  3. METFORMIN HCL [Concomitant]
  4. AVAPRO [Concomitant]
  5. DOLOBID [Concomitant]

REACTIONS (1)
  - MYALGIA [None]
